FAERS Safety Report 8027040-8 (Version None)
Quarter: 2012Q1

REPORT INFORMATION
  Report Type: 
  Country: None (occurrence: None)
  Receive Date: 20120106
  Receipt Date: 20120103
  Transmission Date: 20120608
  Serious: Yes (Death)
  Sender: FDA-Public Use
  Company Number: US-PFIZER INC-2010055079

PATIENT
  Sex: Male
  Weight: 99.773 kg

DRUGS (5)
  1. DETROL [Concomitant]
     Dosage: 4 MG
  2. NEURONTIN [Suspect]
     Indication: STAPHYLOCOCCAL INFECTION
     Dosage: 300 MG, 4X/DAY
     Route: 048
     Dates: start: 20080101
  3. LYRICA [Suspect]
     Indication: STAPHYLOCOCCAL INFECTION
     Dosage: 300 MG, 3X/DAY
     Route: 048
     Dates: start: 20090101
  4. LYRICA [Suspect]
     Indication: VIRAL INFECTION
  5. NEURONTIN [Suspect]
     Indication: VIRAL INFECTION

REACTIONS (2)
  - RASH MACULAR [None]
  - DEATH [None]
